FAERS Safety Report 5344137-1 (Version None)
Quarter: 2007Q2

REPORT INFORMATION
  Report Type: 
  Country: None (occurrence: None)
  Receive Date: 20070604
  Receipt Date: 20070525
  Transmission Date: 20071010
  Serious: Yes (Death, Hospitalization)
  Sender: FDA-Public Use
  Company Number: HU-SANOFI-SYNTHELABO-D01200703136

PATIENT
  Sex: Male
  Weight: 65 kg

DRUGS (15)
  1. LEUCOVORIN CALCIUM [Suspect]
     Route: 042
     Dates: start: 20070416, end: 20070416
  2. FLUOROURACIL [Suspect]
     Dosage: 400 MG/M?, IV BOLUS D1+D2 FOLLOWED BY 5-FU 2400 MG/M? OVER 46-HOUR CONTINUOUS INFUSION.
     Route: 042
     Dates: start: 20070416, end: 20070418
  3. OXALIPLATIN [Suspect]
     Route: 042
     Dates: start: 20070416, end: 20070416
  4. SR57746 OR PLACEBO [Suspect]
     Indication: NEUROLOGICAL SYMPTOM
     Route: 048
     Dates: start: 20070305, end: 20070424
  5. METOCLOPRAMIDE [Concomitant]
  6. PROMETHAZINE [Concomitant]
  7. GRANISETRON [Concomitant]
  8. SPIRONOLACTONE [Concomitant]
  9. SULFASALAZINE [Concomitant]
  10. DROTAVERINE [Concomitant]
     Dates: start: 20070402
  11. ONDANSETRON [Concomitant]
     Dates: start: 20070416, end: 20070418
  12. SIMETHICONE [Concomitant]
     Dates: start: 20070416, end: 20070418
  13. PANTOPRAZOLE SODIUM [Concomitant]
     Dates: start: 20070416, end: 20070418
  14. ESOMEPRAZOLE MAGNESIUM [Concomitant]
  15. URSODIOL [Concomitant]

REACTIONS (1)
  - HYPOTENSION [None]
